FAERS Safety Report 8702661 (Version 2)
Quarter: 2012Q4

REPORT INFORMATION
  Report Type: 
  Country: IE (occurrence: IE)
  Receive Date: 20120803
  Receipt Date: 20120913
  Transmission Date: 20130627
  Serious: Yes (Other)
  Sender: FDA-Public Use
  Company Number: IE-GLAXOSMITHKLINE-B0820323A

PATIENT
  Age: 60 Year
  Sex: Female

DRUGS (6)
  1. LAMICTAL [Suspect]
     Indication: DEPRESSION
     Route: 048
  2. EFEXOR XL [Concomitant]
     Indication: DEPRESSION
     Dosage: 112.5MG per day
     Route: 048
  3. LIVIAL [Concomitant]
     Dosage: 2.5MG per day
     Route: 048
  4. NEXIUM [Concomitant]
     Dosage: 20MG per day
     Route: 048
  5. STILNOCT [Concomitant]
     Dosage: 10MG per day
     Route: 048
  6. ZOLPIDEM TARTRATE [Concomitant]
     Dosage: 10MG per day
     Route: 048

REACTIONS (2)
  - Rash [Recovering/Resolving]
  - Skin burning sensation [Recovered/Resolved]
